FAERS Safety Report 8508748-4 (Version None)
Quarter: 2012Q3

REPORT INFORMATION
  Report Type: 
  Country: None (occurrence: None)
  Receive Date: 20120703
  Receipt Date: 20120619
  Transmission Date: 20120928
  Serious: Yes (Other)
  Sender: FDA-Public Use
  Company Number: 2012MA007554

PATIENT
  Age: 74 Year
  Sex: Male
  Weight: 111.5849 kg

DRUGS (4)
  1. PRAMIPEXOLE DIHYDROCHLORIDE [Suspect]
     Indication: PARKINSON'S DISEASE
     Dosage: 0.5 MG;
     Dates: start: 20120523
  2. GLIPIZIDE [Concomitant]
  3. LISINOPRIL [Concomitant]
  4. METFORMIN HYDROCHLORIDE [Concomitant]

REACTIONS (3)
  - UNRESPONSIVE TO STIMULI [None]
  - FALL [None]
  - SKIN DISCOLOURATION [None]
